FAERS Safety Report 7354594-7 (Version None)
Quarter: 2011Q1

REPORT INFORMATION
  Report Type: 
  Country: None (occurrence: None)
  Receive Date: 20110316
  Receipt Date: 20110303
  Transmission Date: 20110831
  Serious: Yes (Hospitalization)
  Sender: FDA-Public Use
  Company Number: US-GENZYME-CLOF-1001488

PATIENT
  Sex: Female
  Weight: 74.8 kg

DRUGS (9)
  1. CYTARABINE [Suspect]
     Indication: ACUTE MYELOID LEUKAEMIA
     Dosage: 70 MG, ONCE ON DAY 0
     Route: 037
     Dates: start: 20110223, end: 20110223
  2. OXYGEN [Concomitant]
     Indication: HYPOVENTILATION
     Dosage: UNK
     Route: 055
     Dates: start: 20110201, end: 20110201
  3. CEFTAZIDIME [Concomitant]
     Indication: PYREXIA
     Dosage: 2000 MG, BID
     Route: 042
     Dates: start: 20110215
  4. MORPHINE SULDATE [Concomitant]
     Indication: PAIN IN JAW
     Dosage: PCA
     Route: 050
     Dates: start: 20110201
  5. MORPHINE SULDATE [Concomitant]
     Indication: MUCOSAL INFLAMMATION
  6. CYTARABINE [Suspect]
     Dosage: 1870 MG (1000 MG/M2/DOSE), QDX5 ON DAYS 1-5
     Route: 042
     Dates: start: 20110224, end: 20110228
  7. CLOLAR [Suspect]
     Indication: ACUTE MYELOID LEUKAEMIA
     Dosage: 97.2 MG (52 MG/M2/DOSE), QDX5 ON DAYS 1-5
     Route: 042
     Dates: start: 20110224, end: 20110228
  8. OXYGEN [Concomitant]
     Indication: SEDATION
  9. CLINDAMYCIN [Concomitant]
     Indication: ANTIBIOTIC PROPHYLAXIS
     Dosage: 300 MG, TID
     Route: 048
     Dates: start: 20110218

REACTIONS (6)
  - TUMOUR LYSIS SYNDROME [None]
  - HYPOCALCAEMIA [None]
  - HYPOXIA [None]
  - CAPILLARY LEAK SYNDROME [None]
  - HYPOKALAEMIA [None]
  - BLOOD FIBRINOGEN DECREASED [None]
